FAERS Safety Report 7151033 (Version 4)
Quarter: 2015Q1

REPORT INFORMATION
  Report Type: Spontaneous
  Country: US (occurrence: US)
  Receive Date: 20091016
  Receipt Date: 20150310
  Transmission Date: 20150721
  Serious: Yes (Hospitalization, Other)
  Sender: FDA-Public Use
  Company Number: US-BAYER-200935794NA

PATIENT
  Age: 34 Year
  Sex: Female
  Weight: 72.56 kg

DRUGS (10)
  1. TEGRETAL [Concomitant]
     Active Substance: CARBAMAZEPINE
  2. PROVIGIL [Concomitant]
     Active Substance: MODAFINIL
     Dosage: 200 MG, UNK
  3. WELLBUTRIN [Concomitant]
     Active Substance: BUPROPION HYDROCHLORIDE
     Dosage: 300 MG, QD
  4. YAZ [Suspect]
     Active Substance: DROSPIRENONE\ETHINYL ESTRADIOL
     Dosage: 1 DF (DAILY DOSE), QD, ORAL
     Route: 048
     Dates: start: 20071106, end: 20080826
  5. YASMIN [Suspect]
     Active Substance: DROSPIRENONE\ETHINYL ESTRADIOL
     Dosage: UNK
     Dates: start: 20031114, end: 20031212
  6. YASMIN [Suspect]
     Active Substance: DROSPIRENONE\ETHINYL ESTRADIOL
     Dosage: UNK
     Dates: start: 20060130, end: 20071105
  7. CLONAPIN [Concomitant]
     Active Substance: CLONAZEPAM
     Dosage: .5 MG, TID
  8. PHENTERMINE [Concomitant]
     Active Substance: PHENTERMINE
     Dosage: 15 MG, BID
  9. KLONOPIN [Concomitant]
     Active Substance: CLONAZEPAM
  10. PROZAC [Concomitant]
     Active Substance: FLUOXETINE HYDROCHLORIDE
     Dosage: 20 MG, QD

REACTIONS (2)
  - Ischaemic stroke [None]
  - Cerebrovascular accident [None]

NARRATIVE: CASE EVENT DATE: 20080826
